FAERS Safety Report 7409500-3 (Version None)
Quarter: 2011Q2

REPORT INFORMATION
  Report Type: 
  Country: None (occurrence: None)
  Receive Date: 20110412
  Receipt Date: 20110404
  Transmission Date: 20111010
  Serious: Yes (Life-Threatening)
  Sender: FDA-Public Use
  Company Number: US-ASTRAZENECA-2011SE18921

PATIENT
  Age: 927 Month
  Sex: Female
  Weight: 64.1 kg

DRUGS (2)
  1. VANDETANIB [Suspect]
     Indication: MALIGNANT PERITONEAL NEOPLASM
     Route: 048
     Dates: start: 20110302, end: 20110309
  2. DOCETAXEL [Suspect]
     Indication: MALIGNANT PERITONEAL NEOPLASM
     Dosage: 75 MG/M2ON DAY 1 OF CYCLE
     Route: 065
     Dates: start: 20110302

REACTIONS (1)
  - NEUTROPHIL COUNT DECREASED [None]
